FAERS Safety Report 17371617 (Version 2)
Quarter: 2020Q4

REPORT INFORMATION
  Report Type: Spontaneous
  Country: SE (occurrence: SE)
  Receive Date: 20200205
  Receipt Date: 20201204
  Transmission Date: 20210113
  Serious: Yes (Hospitalization, Other)
  Sender: FDA-Public Use
  Company Number: SE-ACCORD-163867

PATIENT
  Sex: Female

DRUGS (7)
  1. SERTRALINE [Suspect]
     Active Substance: SERTRALINE HYDROCHLORIDE
     Route: 048
     Dates: start: 20180404, end: 20180404
  2. MIRTAZAPINE. [Suspect]
     Active Substance: MIRTAZAPINE
     Route: 048
     Dates: start: 20180404, end: 20180404
  3. DICLOFENAC [Suspect]
     Active Substance: DICLOFENAC
     Dosage: 3-4 DICLOFENAC
     Route: 048
     Dates: start: 20180404, end: 20180404
  4. ALVEDON [Suspect]
     Active Substance: ACETAMINOPHEN
     Route: 048
     Dates: start: 20180404, end: 20180404
  5. IMOVANE [Suspect]
     Active Substance: ZOPICLONE
     Route: 048
     Dates: start: 20180404, end: 20180404
  6. LERGIGAN (PROMETHAZINE) [Suspect]
     Active Substance: PROMETHAZINE HYDROCHLORIDE
     Route: 048
     Dates: start: 20180404, end: 20180404
  7. PRAZOSIN. [Suspect]
     Active Substance: PRAZOSIN
     Route: 048
     Dates: start: 20180404, end: 20180404

REACTIONS (3)
  - Depressed level of consciousness [Unknown]
  - Intentional overdose [Unknown]
  - Intentional self-injury [Unknown]

NARRATIVE: CASE EVENT DATE: 20180404
